FAERS Safety Report 20643652 (Version 1)
Quarter: 2022Q1

REPORT INFORMATION
  Report Type: Spontaneous
  Country: US (occurrence: None)
  Receive Date: 20220326
  Receipt Date: 20220326
  Transmission Date: 20220423
  Serious: No
  Sender: FDA-Public Use
  Company Number: None

PATIENT
  Age: 71 Year
  Sex: Male
  Weight: 87.75 kg

DRUGS (10)
  1. GABAPENTIN [Suspect]
     Active Substance: GABAPENTIN
     Indication: Neuralgia
     Dosage: OTHER QUANTITY : 45 CAPSULE(S);?FREQUENCY : 3 TIMES A DAY;?
     Route: 048
     Dates: start: 20220216, end: 20220218
  2. PREDNISONE [Concomitant]
     Active Substance: PREDNISONE
  3. FAMOTIDINE [Concomitant]
     Active Substance: FAMOTIDINE
  4. OMEPRAZOLE [Concomitant]
     Active Substance: OMEPRAZOLE
  5. MINERALS\VITAMINS [Concomitant]
     Active Substance: MINERALS\VITAMINS
  6. LYSINE [Concomitant]
     Active Substance: LYSINE
  7. MIRALAX [Concomitant]
     Active Substance: POLYETHYLENE GLYCOL 3350
  8. LORATADINE [Concomitant]
     Active Substance: LORATADINE
  9. FLONASE [Concomitant]
     Active Substance: FLUTICASONE PROPIONATE
  10. BENZEDREX [Concomitant]
     Active Substance: PROPYLHEXEDRINE

REACTIONS (1)
  - Heart rate irregular [None]

NARRATIVE: CASE EVENT DATE: 20220218
